FAERS Safety Report 8190499-X (Version None)
Quarter: 2012Q1

REPORT INFORMATION
  Report Type: 
  Country: None (occurrence: None)
  Receive Date: 20120307
  Receipt Date: 20120305
  Transmission Date: 20120608
  Serious: Yes (Death, Other)
  Sender: FDA-Public Use
  Company Number: PHHY2012JP008437

PATIENT
  Age: 54 Year
  Sex: Female

DRUGS (3)
  1. OXALIPLATIN [Suspect]
     Indication: COLON CANCER METASTATIC
     Dosage: 130 MG/M2, ON DAY 1
     Dates: start: 20100401
  2. LANSOPRAZOLE [Concomitant]
     Indication: GASTRITIS
     Dosage: 15 MG, UNK
     Route: 048
  3. CAPECITABINE [Suspect]
     Indication: COLON CANCER METASTATIC
     Dosage: 2000 MG/M2, TIW
     Dates: start: 20100401

REACTIONS (13)
  - NORMOCHROMIC NORMOCYTIC ANAEMIA [None]
  - THROMBOCYTOPENIA [None]
  - DEATH [None]
  - FEELING ABNORMAL [None]
  - PERITONEAL DISORDER [None]
  - OEDEMA PERIPHERAL [None]
  - OVARIAN ENLARGEMENT [None]
  - ASCITES [None]
  - ANAEMIA HAEMOLYTIC AUTOIMMUNE [None]
  - RENAL FAILURE ACUTE [None]
  - FATIGUE [None]
  - SPLENOMEGALY [None]
  - GENERAL PHYSICAL HEALTH DETERIORATION [None]
